FAERS Safety Report 18463717 (Version 4)
Quarter: 2021Q3

REPORT INFORMATION
  Report Type: Report from Study
  Country: FR (occurrence: FR)
  Receive Date: 20201104
  Receipt Date: 20210917
  Transmission Date: 20211014
  Serious: Yes (Hospitalization, Other)
  Sender: FDA-Public Use
  Company Number: FR-TAKEDA-2020TUS046035

PATIENT
  Age: 64 Year
  Sex: Female

DRUGS (38)
  1. TEDUGLUTIDE [Suspect]
     Active Substance: TEDUGLUTIDE
     Dosage: 3.8 MILLIGRAM (0.05 MG/KG DAILY DOSE), TED DOSES PER WEEK 7
     Route: 065
     Dates: start: 20161104, end: 20161208
  2. TEDUGLUTIDE [Suspect]
     Active Substance: TEDUGLUTIDE
     Dosage: 3.6 MILLIGRAM (0.05 MG/KG DAILY DOSE), TED DOSES PER WEEK 7
     Route: 065
     Dates: start: 20161209, end: 20170403
  3. TEDUGLUTIDE [Suspect]
     Active Substance: TEDUGLUTIDE
     Dosage: 3.4 MILLIGRAM (0.05 MG/KG DAILY DOSE), TED DOSES PER WEEK 7
     Route: 065
     Dates: start: 20170404, end: 20171016
  4. TEDUGLUTIDE [Suspect]
     Active Substance: TEDUGLUTIDE
     Dosage: 3 MILLIGRAM (0.05 MG/KG DAILY DOSE), TED DOSES PER WEEK 7
     Route: 065
     Dates: start: 20180308, end: 20180313
  5. TEDUGLUTIDE [Suspect]
     Active Substance: TEDUGLUTIDE
     Dosage: 3.6 MILLIGRAM (0.05 MG/KG DAILY DOSE), TED DOSES PER WEEK 7
     Route: 065
     Dates: start: 20161209, end: 20170403
  6. TEDUGLUTIDE [Suspect]
     Active Substance: TEDUGLUTIDE
     Dosage: 3 MILLIGRAM (0.05 MG/KG DAILY DOSE), TED DOSES PER WEEK 7
     Route: 065
     Dates: start: 20180130, end: 20180219
  7. TEDUGLUTIDE [Suspect]
     Active Substance: TEDUGLUTIDE
     Dosage: 3 MILLIGRAM (0.05 MG/KG DAILY DOSE), TED DOSES PER WEEK 7
     Route: 065
     Dates: start: 20180308, end: 20180313
  8. NACL [Concomitant]
     Active Substance: SODIUM CHLORIDE
     Indication: HYPONATRAEMIA
     Dosage: 4 LITER
     Route: 042
     Dates: start: 201802, end: 201802
  9. NACL [Concomitant]
     Active Substance: SODIUM CHLORIDE
     Dosage: 30 MILLIGRAM/KILOGRAM, QD
     Route: 042
     Dates: start: 20200901, end: 20200911
  10. CEFTRIAXONE. [Concomitant]
     Active Substance: CEFTRIAXONE
     Indication: SEPSIS
     Dosage: 2 GRAM, QD
     Route: 048
     Dates: start: 20200628, end: 20200705
  11. TEDUGLUTIDE [Suspect]
     Active Substance: TEDUGLUTIDE
     Indication: SHORT-BOWEL SYNDROME
     Dosage: 3.6 MILLIGRAM (0.05 MG/KG DAILY DOSE), TED DOSES PER WEEK 7
     Route: 065
     Dates: start: 20161004, end: 20161103
  12. TEDUGLUTIDE [Suspect]
     Active Substance: TEDUGLUTIDE
     Dosage: 3.4 MILLIGRAM (0.05 MG/KG DAILY DOSE), TED DOSES PER WEEK 7
     Route: 065
     Dates: start: 20170404, end: 20171016
  13. TEDUGLUTIDE [Suspect]
     Active Substance: TEDUGLUTIDE
     Dosage: 3.4 MILLIGRAM (0.05 MG/KG DAILY DOSE), TED DOSES PER WEEK 7
     Route: 065
     Dates: start: 20170404, end: 20171016
  14. TEDUGLUTIDE [Suspect]
     Active Substance: TEDUGLUTIDE
     Dosage: 3.2 MILLIGRAM (0.05 MG/KG DAILY DOSE), TED DOSES PER WEEK 7
     Route: 065
     Dates: start: 20171017, end: 20180129
  15. TEDUGLUTIDE [Suspect]
     Active Substance: TEDUGLUTIDE
     Dosage: 3 MILLIGRAM (0.05 MG/KG DAILY DOSE), TED DOSES PER WEEK 7
     Route: 065
     Dates: start: 20180130, end: 20180219
  16. TEDUGLUTIDE [Suspect]
     Active Substance: TEDUGLUTIDE
     Dosage: 3 MILLIGRAM (0.05 MG/KG DAILY DOSE), TED DOSES PER WEEK 7
     Route: 065
     Dates: start: 20180308, end: 20180313
  17. INSULIN [Concomitant]
     Active Substance: INSULIN NOS
     Indication: HYPERKALAEMIA
     Dosage: 10 INTERNATIONAL UNIT, QD
     Dates: start: 20180218, end: 20180218
  18. VITAMIN C [Concomitant]
     Active Substance: ASCORBIC ACID
     Indication: HYPOVITAMINOSIS
     Dosage: 1 DOSAGE FORM, QD
     Route: 042
     Dates: start: 20210610, end: 20210610
  19. AMIKACINE [Concomitant]
     Active Substance: AMIKACIN
     Indication: VASCULAR DEVICE INFECTION
     Dosage: UNK UNK, QD
     Route: 065
     Dates: start: 20200630, end: 202007
  20. TEDUGLUTIDE [Suspect]
     Active Substance: TEDUGLUTIDE
     Indication: SHORT-BOWEL SYNDROME
     Dosage: 3.6 MILLIGRAM (0.05 MG/KG DAILY DOSE), TED DOSES PER WEEK 7
     Route: 065
     Dates: start: 20161004, end: 20161103
  21. TEDUGLUTIDE [Suspect]
     Active Substance: TEDUGLUTIDE
     Dosage: 3.8 MILLIGRAM (0.05 MG/KG DAILY DOSE), TED DOSES PER WEEK 7
     Route: 065
     Dates: start: 20161104, end: 20161208
  22. TEDUGLUTIDE [Suspect]
     Active Substance: TEDUGLUTIDE
     Dosage: 3.8 MILLIGRAM (0.05 MG/KG DAILY DOSE), TED DOSES PER WEEK 7
     Route: 065
     Dates: start: 20161104, end: 20161208
  23. TEDUGLUTIDE [Suspect]
     Active Substance: TEDUGLUTIDE
     Dosage: 3.6 MILLIGRAM (0.05 MG/KG DAILY DOSE), TED DOSES PER WEEK 7
     Route: 065
     Dates: start: 20161209, end: 20170403
  24. TEDUGLUTIDE [Suspect]
     Active Substance: TEDUGLUTIDE
     Dosage: 3.2 MILLIGRAM (0.05 MG/KG DAILY DOSE), TED DOSES PER WEEK 7
     Route: 065
     Dates: start: 20171017, end: 20180129
  25. TEDUGLUTIDE [Suspect]
     Active Substance: TEDUGLUTIDE
     Dosage: 3 MILLIGRAM (0.05 MG/KG DAILY DOSE), TED DOSES PER WEEK 7
     Route: 065
     Dates: start: 20180130, end: 20180219
  26. LASIX [Concomitant]
     Active Substance: FUROSEMIDE
     Indication: HYPERKALAEMIA
     Dosage: 1 UNK, QD
     Route: 065
     Dates: start: 20180308, end: 20180308
  27. TEDUGLUTIDE [Suspect]
     Active Substance: TEDUGLUTIDE
     Indication: SHORT-BOWEL SYNDROME
     Dosage: 3.6 MILLIGRAM (0.05 MG/KG DAILY DOSE), TED DOSES PER WEEK 7
     Route: 065
     Dates: start: 20161004, end: 20161103
  28. TEDUGLUTIDE [Suspect]
     Active Substance: TEDUGLUTIDE
     Dosage: 3.6 MILLIGRAM (0.05 MG/KG DAILY DOSE), TED DOSES PER WEEK 7
     Route: 065
     Dates: start: 20161209, end: 20170403
  29. TEDUGLUTIDE [Suspect]
     Active Substance: TEDUGLUTIDE
     Dosage: 3.2 MILLIGRAM (0.05 MG/KG DAILY DOSE), TED DOSES PER WEEK 7
     Route: 065
     Dates: start: 20171017, end: 20180129
  30. TEDUGLUTIDE [Suspect]
     Active Substance: TEDUGLUTIDE
     Dosage: 3.8 MILLIGRAM (0.05 MG/KG DAILY DOSE), TED DOSES PER WEEK 7
     Route: 065
     Dates: start: 20161104, end: 20161208
  31. TEDUGLUTIDE [Suspect]
     Active Substance: TEDUGLUTIDE
     Dosage: 3.4 MILLIGRAM (0.05 MG/KG DAILY DOSE), TED DOSES PER WEEK 7
     Route: 065
     Dates: start: 20170404, end: 20171016
  32. TEDUGLUTIDE [Suspect]
     Active Substance: TEDUGLUTIDE
     Dosage: 3 MILLIGRAM (0.05 MG/KG DAILY DOSE), TED DOSES PER WEEK 7
     Route: 065
     Dates: start: 20180130, end: 20180219
  33. TEDUGLUTIDE [Suspect]
     Active Substance: TEDUGLUTIDE
     Indication: SHORT-BOWEL SYNDROME
     Dosage: 3.6 MILLIGRAM (0.05 MG/KG DAILY DOSE), TED DOSES PER WEEK 7
     Route: 065
     Dates: start: 20161004, end: 20161103
  34. TEDUGLUTIDE [Suspect]
     Active Substance: TEDUGLUTIDE
     Dosage: 3.2 MILLIGRAM (0.05 MG/KG DAILY DOSE), TED DOSES PER WEEK 7
     Route: 065
     Dates: start: 20171017, end: 20180129
  35. TEDUGLUTIDE [Suspect]
     Active Substance: TEDUGLUTIDE
     Dosage: 3 MILLIGRAM (0.05 MG/KG DAILY DOSE), TED DOSES PER WEEK 7
     Route: 065
     Dates: start: 20180308, end: 20180313
  36. INSULIN [Concomitant]
     Active Substance: INSULIN NOS
     Dosage: 1 UNK
     Dates: start: 20180308, end: 20180308
  37. POTASSIUM [Concomitant]
     Active Substance: POTASSIUM
     Indication: HYPOKALAEMIA
     Dosage: 5 GRAM, PER 5 HOURS
     Route: 042
     Dates: start: 20200901, end: 20200911
  38. FENOFIBRATE. [Concomitant]
     Active Substance: FENOFIBRATE
     Indication: HYPERTRIGLYCERIDAEMIA
     Dosage: 1 DOSAGE FORM, QD
     Route: 048
     Dates: start: 2021

REACTIONS (6)
  - Altered state of consciousness [Recovered/Resolved]
  - Metabolic alkalosis [Recovered/Resolved]
  - Hypovitaminosis [Recovered/Resolved]
  - Hypokalaemia [Recovered/Resolved]
  - Sepsis [Recovered/Resolved]
  - Vascular device infection [Recovered/Resolved]

NARRATIVE: CASE EVENT DATE: 20200627
